FAERS Safety Report 21689232 (Version 1)
Quarter: 2022Q4

REPORT INFORMATION
  Report Type: Report from Study
  Country: CO (occurrence: CO)
  Receive Date: 20221206
  Receipt Date: 20221206
  Transmission Date: 20230113
  Serious: Yes (Hospitalization)
  Sender: FDA-Public Use
  Company Number: CO-TAKEDA-2022TUS093792

PATIENT
  Sex: Female
  Weight: 74 kg

DRUGS (1)
  1. IXAZOMIB [Suspect]
     Active Substance: IXAZOMIB
     Indication: Plasma cell myeloma
     Dosage: 3 MILLIGRAM
     Route: 048

REACTIONS (2)
  - Parainfluenzae virus infection [Recovered/Resolved]
  - Product administration error [Unknown]
